FAERS Safety Report 14569423 (Version 2)
Quarter: 2018Q1

REPORT INFORMATION
  Report Type: Report from Study
  Country: JP (occurrence: JP)
  Receive Date: 20180223
  Receipt Date: 20180302
  Transmission Date: 20180509
  Serious: Yes (Hospitalization)
  Sender: FDA-Public Use
  Company Number: JP-B.I. PHARMACEUTICALS,INC./RIDGEFIELD-2018-BI-009042

PATIENT
  Age: 69 Year
  Sex: Female
  Weight: 51 kg

DRUGS (7)
  1. BLINDED BIBF 1120 [Suspect]
     Active Substance: NINTEDANIB
     Indication: PLEURAL MESOTHELIOMA MALIGNANT
     Route: 048
     Dates: start: 20171220
  2. PANVITAN [Concomitant]
     Indication: ADVERSE DRUG REACTION
     Route: 048
     Dates: start: 20171130
  3. AMBROXOL HYDROCHOLRIDE [Concomitant]
     Indication: PRODUCTIVE COUGH
     Route: 048
     Dates: start: 20171128
  4. CISPLATIN. [Suspect]
     Active Substance: CISPLATIN
     Indication: PLEURAL MESOTHELIOMA MALIGNANT
     Route: 042
     Dates: start: 20180207, end: 20180207
  5. ALIMTA [Suspect]
     Active Substance: PEMETREXED DISODIUM
     Indication: MESOTHELIOMA
     Route: 042
     Dates: start: 20180207, end: 20180207
  6. NEXIUM [Concomitant]
     Active Substance: ESOMEPRAZOLE MAGNESIUM
     Indication: PROPHYLAXIS
     Dosage: STRENGTH:20
     Route: 048
     Dates: start: 20171222
  7. BIOTHREE [Concomitant]
     Indication: DIARRHOEA
     Route: 048
     Dates: start: 20171225

REACTIONS (1)
  - Neutrophil count decreased [Recovered/Resolved]

NARRATIVE: CASE EVENT DATE: 20180213
